FAERS Safety Report 5470586-7 (Version None)
Quarter: 2007Q3

REPORT INFORMATION
  Report Type: 
  Country: None (occurrence: None)
  Receive Date: 20070928
  Receipt Date: 20070924
  Transmission Date: 20080115
  Serious: Yes (Hospitalization)
  Sender: FDA-Public Use
  Company Number: CN-JNJFOC-20070904117

PATIENT
  Age: 45 Year
  Sex: Male

DRUGS (3)
  1. CHILDREN'S MOTRIN [Suspect]
     Indication: PHARYNGOLARYNGEAL PAIN
  2. CHILDREN'S MOTRIN [Suspect]
     Indication: PYREXIA
  3. LINCOMYCIN HCL [Suspect]
     Indication: ANTIBIOTIC PROPHYLAXIS
     Route: 042

REACTIONS (1)
  - RENAL FAILURE ACUTE [None]
